FAERS Safety Report 8292340-3 (Version None)
Quarter: 2012Q2

REPORT INFORMATION
  Report Type: 
  Country: None (occurrence: None)
  Receive Date: 20120417
  Receipt Date: 20120406
  Transmission Date: 20120825
  Serious: Yes (Hospitalization)
  Sender: FDA-Public Use
  Company Number: US-ROCHE-1053507

PATIENT
  Sex: Female
  Weight: 64 kg

DRUGS (10)
  1. AMLODIPINE [Concomitant]
     Indication: HYPERTENSION
     Route: 048
  2. TRAZODONE HCL [Concomitant]
     Indication: DEPRESSION
     Route: 048
     Dates: start: 20090101
  3. COPEGUS [Suspect]
     Indication: HEPATITIS C
     Route: 048
     Dates: start: 20111101, end: 20120117
  4. COPEGUS [Suspect]
     Route: 048
  5. BLINDED BI 201335 (HCV PROTEASE INHIBITOR) [Suspect]
     Indication: HEPATITIS C
     Dosage: DOSAGE FORM: KAW
     Route: 048
     Dates: start: 20111101, end: 20120124
  6. PEGINTERFERON ALFA-2A [Suspect]
     Indication: HEPATITIS C
     Dosage: DOSAGE FORM:SPI
     Route: 058
     Dates: start: 20111101, end: 20120117
  7. PEGINTERFERON ALFA-2A [Suspect]
     Dosage: THERAPY ONGOING
  8. FLUOXETINE [Concomitant]
     Indication: DEPRESSION
     Route: 048
     Dates: start: 20090101
  9. COMPAZINE [Concomitant]
  10. LISINOPRIL AND HYDROCHLOROTHIAZIDE [Concomitant]
     Indication: HYPERTENSION
     Dosage: 20-25 MG
     Route: 048

REACTIONS (1)
  - PRESYNCOPE [None]
